FAERS Safety Report 8098129-2 (Version None)
Quarter: 2012Q1

REPORT INFORMATION
  Report Type: 
  Country: None (occurrence: None)
  Receive Date: 20120128
  Receipt Date: 20110809
  Transmission Date: 20120608
  Serious: No
  Sender: FDA-Public Use
  Company Number: US-ABBOTT-11P-163-0845010-00

PATIENT
  Age: 32 Year
  Sex: Female

DRUGS (4)
  1. XYZAL [Concomitant]
     Indication: PRODUCT USED FOR UNKNOWN INDICATION
     Dosage: QD
  2. HUMIRA [Suspect]
     Indication: CROHN'S DISEASE
     Dosage: 160MG AND 80MG LOADING DOSES
     Dates: start: 20110721
  3. BIRTH CONTROL PILLS [Concomitant]
     Indication: PRODUCT USED FOR UNKNOWN INDICATION
     Dosage: QD
  4. RHINOCORT [Concomitant]
     Indication: PRODUCT USED FOR UNKNOWN INDICATION

REACTIONS (3)
  - DIARRHOEA [None]
  - MUSCULOSKELETAL CHEST PAIN [None]
  - TENDERNESS [None]
